FAERS Safety Report 7148703-2 (Version None)
Quarter: 2010Q4

REPORT INFORMATION
  Report Type: 
  Country: None (occurrence: None)
  Receive Date: 20101209
  Receipt Date: 20101202
  Transmission Date: 20110411
  Serious: Yes (Other)
  Sender: FDA-Public Use
  Company Number: DE-ROCHE-743655

PATIENT
  Age: 59 Year
  Sex: Female
  Weight: 108 kg

DRUGS (10)
  1. HERCEPTIN [Suspect]
     Indication: BREAST CANCER
     Dosage: IN COMBINATION WITH CARBOPLATIN AND PACLITAXEL, ADJUVANT THERAPY
     Route: 042
     Dates: start: 20091101, end: 20091201
  2. HERCEPTIN [Suspect]
     Dosage: CONSOLIDATION THERAPY
     Route: 042
     Dates: start: 20100901
  3. CARBOPLATIN [Concomitant]
     Indication: BREAST CANCER
     Dosage: IN COMBINATION WITH TRASTUZUMAB AND PACLITAXEL
     Dates: start: 20091101, end: 20100301
  4. TAXOL [Concomitant]
     Indication: BREAST CANCER
     Dosage: IN COMBINATION WITH TRASTUZUMAB AND CARBOPLATIN
     Dates: start: 20091101, end: 20100301
  5. ANASTROZOLE [Concomitant]
     Indication: BREAST CANCER
     Route: 048
  6. ANASTROZOLE [Concomitant]
     Route: 048
     Dates: start: 20100701
  7. DIGITOXIN [Concomitant]
     Indication: ATRIAL FLUTTER
     Route: 048
     Dates: start: 20091201
  8. LISINOPRIL [Concomitant]
     Indication: HYPERTENSION
     Route: 048
  9. AMLODIPINE [Concomitant]
     Indication: HYPERTENSION
     Route: 048
  10. BISOPROLOL [Concomitant]
     Dates: start: 20091201

REACTIONS (5)
  - ATRIAL FLUTTER [None]
  - DISTURBANCE IN ATTENTION [None]
  - DIZZINESS [None]
  - HEADACHE [None]
  - WEIGHT DECREASED [None]
